FAERS Safety Report 4319840-2 (Version None)
Quarter: 2004Q1

REPORT INFORMATION
  Report Type: 
  Country: None (occurrence: None)
  Receive Date: 20040317
  Receipt Date: 20040305
  Transmission Date: 20041129
  Serious: Yes (Hospitalization)
  Sender: FDA-Public Use
  Company Number: 163-20785-04030176 (0)

PATIENT
  Age: 52 Year
  Sex: Male

DRUGS (1)
  1. THALOMID [Suspect]
     Dosage: 100 MG, QD, ORAL
     Route: 048
     Dates: start: 20040119

REACTIONS (2)
  - HAEMORRHAGE [None]
  - LEUKAEMIA [None]
